FAERS Safety Report 7455207-6 (Version None)
Quarter: 2011Q2

REPORT INFORMATION
  Report Type: 
  Country: None (occurrence: None)
  Receive Date: 20110503
  Receipt Date: 20110426
  Transmission Date: 20111010
  Serious: Yes (Hospitalization, Other)
  Sender: FDA-Public Use
  Company Number: GB-SANOFI-AVENTIS-2011SA011626

PATIENT
  Sex: Male
  Weight: 100 kg

DRUGS (13)
  1. BISOPROLOL FUMARATE [Concomitant]
     Dates: start: 20101001
  2. CANDESARTAN CILEXETIL [Concomitant]
  3. SPIRONOLACTONE [Concomitant]
  4. GAVISCON [Concomitant]
  5. ALLOPURINOL [Concomitant]
  6. OMACOR [Concomitant]
  7. WARFARIN SODIUM [Concomitant]
  8. MULTAQ [Suspect]
     Route: 048
     Dates: start: 20101004, end: 20101010
  9. DIGOXIN [Concomitant]
  10. DOXAZOSIN MESYLATE [Concomitant]
  11. METFORMIN HYDROCHLORIDE [Concomitant]
  12. ATORVASTATIN [Concomitant]
  13. FINASTERIDE [Concomitant]

REACTIONS (6)
  - FLUID RETENTION [None]
  - RENAL FAILURE ACUTE [None]
  - BLOOD CREATININE INCREASED [None]
  - CARDIOACTIVE DRUG LEVEL INCREASED [None]
  - OLIGURIA [None]
  - HYPERKALAEMIA [None]
